FAERS Safety Report 25088107 (Version 1)
Quarter: 2025Q1

REPORT INFORMATION
  Report Type: Spontaneous
  Country: GB (occurrence: GB)
  Receive Date: 20250318
  Receipt Date: 20250318
  Transmission Date: 20250408
  Serious: Yes (Other)
  Sender: MYLAN
  Company Number: None

PATIENT
  Age: 60 Year
  Sex: Male

DRUGS (5)
  1. SILDENAFIL CITRATE [Suspect]
     Active Substance: SILDENAFIL CITRATE
     Indication: Pulmonary arterial hypertension
     Dosage: 100 MILLIGRAM, TID (100MG - THREE TIMES DAILY)
     Dates: start: 20200201
  2. SILDENAFIL CITRATE [Suspect]
     Active Substance: SILDENAFIL CITRATE
     Dosage: UNK, TID (OFF DOING 2 DOSES IN THE MORNING, THEN 1 IN THE AFTERNOON, AND 1 IN THE EVENING)
  3. SILDENAFIL CITRATE [Suspect]
     Active Substance: SILDENAFIL CITRATE
     Dosage: UNK, TID (INCREASED AFTERNOON TO TWO AND THEN EVENING TO 2)
  4. AMBRISENTAN [Concomitant]
     Active Substance: AMBRISENTAN
  5. UPTRAVI [Concomitant]
     Active Substance: SELEXIPAG

REACTIONS (4)
  - Blood pressure measurement [Unknown]
  - Anxiety [Unknown]
  - Feeling jittery [Unknown]
  - Nervousness [Unknown]

NARRATIVE: CASE EVENT DATE: 20250304
